FAERS Safety Report 13662585 (Version 9)
Quarter: 2019Q2

REPORT INFORMATION
  Report Type: Report from Study
  Country: DE (occurrence: DE)
  Receive Date: 20170618
  Receipt Date: 20190605
  Transmission Date: 20190711
  Serious: Yes (Hospitalization)
  Sender: FDA-Public Use
  Company Number: DE-UCBSA-2017022399

PATIENT
  Age: 23 Year
  Sex: Female
  Weight: 59 kg

DRUGS (6)
  1. LAMUNA [Concomitant]
     Active Substance: DESOGESTREL\ETHINYL ESTRADIOL
     Indication: CONTRACEPTION
     Dosage: UNK, ONCE DAILY (QD)
     Route: 048
     Dates: start: 2012
  2. CERTOLIZUMAB PEGOL VS PLACEBO [Suspect]
     Active Substance: CERTOLIZUMAB PEGOL
     Indication: AXIAL SPONDYLOARTHRITIS
     Dosage: 200 MG EVERY 2 WEEKS OR EVERY 4 WEEKS (BATCH NUMBER:BX1014507)
     Route: 058
     Dates: start: 20161014, end: 20170512
  3. CETIRIZINE [Concomitant]
     Active Substance: CETIRIZINE HYDROCHLORIDE
     Indication: SURGERY
     Dosage: 10 MG, AS NEEDED (PRN)
     Route: 048
  4. IBUPROFEN. [Concomitant]
     Active Substance: IBUPROFEN
     Indication: PRODUCT USED FOR UNKNOWN INDICATION
     Dosage: 600 MG, AS NEEDED (PRN)
     Route: 048
     Dates: start: 20170512, end: 20170602
  5. NOVAMINSULFON [Concomitant]
     Active Substance: METAMIZOLE
     Indication: AXIAL SPONDYLOARTHRITIS
     Dosage: 500 MG, AS NEEDED (PRN)
     Route: 048
     Dates: start: 201607
  6. CERTOLIZUMAB PEGOL VS PLACEBO [Suspect]
     Active Substance: CERTOLIZUMAB PEGOL
     Dosage: 200 MILLIGRAM, EV 2 WEEKS(QOW)
     Route: 058
     Dates: start: 20170629, end: 2017

REACTIONS (2)
  - Urticaria [Recovered/Resolved with Sequelae]
  - Dyshidrotic eczema [Recovered/Resolved with Sequelae]

NARRATIVE: CASE EVENT DATE: 20170427
